FAERS Safety Report 17734598 (Version 5)
Quarter: 2020Q2

REPORT INFORMATION
  Report Type: Report from Study
  Country: US (occurrence: US)
  Receive Date: 20200501
  Receipt Date: 20200630
  Transmission Date: 20200714
  Serious: Yes (Other)
  Sender: FDA-Public Use
  Company Number: US-GILEAD-2020-0457476

PATIENT
  Age: 50 Year
  Sex: Male
  Weight: 84.81 kg

DRUGS (20)
  1. DIGOXIN. [Concomitant]
     Active Substance: DIGOXIN
  2. AMBRISENTAN [Suspect]
     Active Substance: AMBRISENTAN
     Indication: PULMONARY ARTERIAL HYPERTENSION
     Dosage: 10 MG, QD
     Route: 048
     Dates: start: 20190719
  3. REMODULIN [Suspect]
     Active Substance: TREPROSTINIL
     Indication: PRODUCT USED FOR UNKNOWN INDICATION
     Route: 065
  4. SILDENAFIL. [Concomitant]
     Active Substance: SILDENAFIL
  5. XARELTO [Concomitant]
     Active Substance: RIVAROXABAN
  6. ADVAIR HFA [Concomitant]
     Active Substance: FLUTICASONE PROPIONATE\SALMETEROL XINAFOATE
  7. LEVOTHYROXINE. [Concomitant]
     Active Substance: LEVOTHYROXINE
  8. MUCINEX [Concomitant]
     Active Substance: GUAIFENESIN
  9. OXYCODONE [Concomitant]
     Active Substance: OXYCODONE
  10. ORENITRAM [Suspect]
     Active Substance: TREPROSTINIL
     Indication: PRODUCT USED FOR UNKNOWN INDICATION
     Dosage: TID
     Route: 065
  11. VITAMINS NOS [Concomitant]
     Active Substance: VITAMINS
  12. IRON [Concomitant]
     Active Substance: IRON
  13. BUMETANIDE. [Concomitant]
     Active Substance: BUMETANIDE
  14. OXYGEN. [Concomitant]
     Active Substance: OXYGEN
  15. DIGOX [ACETYLDIGOXIN] [Concomitant]
     Active Substance: .ALPHA.-ACETYLDIGOXIN
  16. BUMEX [Concomitant]
     Active Substance: BUMETANIDE
  17. SPIRONOLACTONE. [Concomitant]
     Active Substance: SPIRONOLACTONE
  18. TAMSULOSIN [Concomitant]
     Active Substance: TAMSULOSIN
  19. ACETAMINOPHEN. [Concomitant]
     Active Substance: ACETAMINOPHEN
  20. VENTOLIN HFA [Concomitant]
     Active Substance: ALBUTEROL SULFATE

REACTIONS (22)
  - Myalgia [Unknown]
  - Unevaluable event [Unknown]
  - Intentional product use issue [Unknown]
  - Oral dysaesthesia [Recovered/Resolved]
  - Peripheral swelling [Not Recovered/Not Resolved]
  - Cellulitis [Unknown]
  - Muscle spasms [Unknown]
  - Chest pain [Unknown]
  - Dyspnoea exertional [Not Recovered/Not Resolved]
  - Dyspnoea [Not Recovered/Not Resolved]
  - Muscle spasms [Not Recovered/Not Resolved]
  - Taste disorder [Recovered/Resolved]
  - Hypersensitivity [Unknown]
  - Swelling [Unknown]
  - Disease progression [Not Recovered/Not Resolved]
  - Headache [Recovered/Resolved]
  - Fatigue [Recovered/Resolved]
  - Mental disorder [Unknown]
  - Fatigue [Unknown]
  - Headache [Not Recovered/Not Resolved]
  - Chest discomfort [Unknown]
  - Diet noncompliance [Not Recovered/Not Resolved]

NARRATIVE: CASE EVENT DATE: 201910
